FAERS Safety Report 5427399-1 (Version None)
Quarter: 2007Q3

REPORT INFORMATION
  Report Type: 
  Country: None (occurrence: None)
  Receive Date: 20070824
  Receipt Date: 20070824
  Transmission Date: 20080115
  Serious: Yes (Hospitalization)
  Sender: FDA-Public Use
  Company Number: None

PATIENT
  Age: 86 Year
  Sex: Male

DRUGS (2)
  1. WARFARIN SODIUM [Suspect]
     Indication: DEEP VEIN THROMBOSIS
     Dosage: 3MG EVERY DAY PO
     Route: 048
     Dates: start: 20070401
  2. WARFARIN SODIUM [Suspect]
     Indication: PULMONARY EMBOLISM
     Dosage: 3MG EVERY DAY PO
     Route: 048
     Dates: start: 20070401

REACTIONS (3)
  - DRUG TOXICITY [None]
  - FAECES DISCOLOURED [None]
  - INTERNATIONAL NORMALISED RATIO ABNORMAL [None]
